FAERS Safety Report 9508469 (Version 1)
Quarter: 2013Q1

REPORT INFORMATION
  Report Type: Spontaneous
  Country: US (occurrence: None)
  Receive Date: 20130305
  Receipt Date: 20130305
  Transmission Date: 20140127
  Serious: Yes (Other)
  Sender: FDA-Public Use
  Company Number: 163-21880-12111108

PATIENT
  Age: 77 Year
  Sex: Female

DRUGS (12)
  1. REVLIMID (LENALIDOMIDE) (25 MILLIGRAM, CAPSULES) [Suspect]
     Indication: PLASMA CELL MYELOMA
     Dosage: 04/21/2012- TEMPORARILY INTERRUPTED?21 IN 28 D
     Route: 048
     Dates: start: 20120421
  2. ACETAMINOPHEN (PARACETAMOL) [Concomitant]
  3. ASPIRIN LOW DOSE (ACETYLSALICYLIC ACID) [Concomitant]
  4. DEXAMETHASONE (DEXAMETHASONE) [Concomitant]
  5. DIPHENHYDRAMINE (DIPHENHYDRAMINE) [Concomitant]
  6. LISINOPRIL / HTCZ (ZESTORETIC) [Concomitant]
  7. METFORMIN (METFORMIN) [Concomitant]
  8. VITAMINS [Concomitant]
  9. PROMETHAZINE (PROMETHAZINE) [Concomitant]
  10. SIMVASTATIN (SIMVASTATIN) [Concomitant]
  11. RBC (RED BLOOD CELLS) [Concomitant]
  12. LEUKOPOOR (PLATELETS) [Concomitant]

REACTIONS (1)
  - Neuropathy peripheral [None]
